FAERS Safety Report 5869978-3 (Version None)
Quarter: 2008Q3

REPORT INFORMATION
  Report Type: 
  Country: None (occurrence: None)
  Receive Date: 20080904
  Receipt Date: 20080904
  Transmission Date: 20090109
  Serious: Yes (Hospitalization)
  Sender: FDA-Public Use
  Company Number: PHEH1995US03028

PATIENT
  Sex: Male
  Weight: 93 kg

DRUGS (8)
  1. SANDIMMUNE [Suspect]
     Route: 048
     Dates: start: 19951019
  2. AZATHIOPRINE [Concomitant]
  3. PREDNISONE TAB [Concomitant]
  4. TRIMETHOPRIM/SULFA (BACTRIM) [Concomitant]
     Dosage: 160/800 MG
  5. ACYCLOVIR [Concomitant]
  6. CLOTRIMAZOLE TROCHE (CLOTRIMAZOLE) [Concomitant]
  7. NIZATIDINE [Concomitant]
  8. INSULIN-REGULAR (INSULIN) [Concomitant]

REACTIONS (4)
  - ASCITES [None]
  - FLUID RETENTION [None]
  - OEDEMA [None]
  - WEIGHT INCREASED [None]
